FAERS Safety Report 4299909-1 (Version None)
Quarter: 2004Q1

REPORT INFORMATION
  Report Type: 
  Country: None (occurrence: None)
  Receive Date: 20040219
  Receipt Date: 20040219
  Transmission Date: 20041129
  Serious: Yes (Hospitalization)
  Sender: FDA-Public Use
  Company Number: None

PATIENT
  Age: 74 Year
  Sex: Male
  Weight: 78.0187 kg

DRUGS (7)
  1. WARFARIN SODIUM [Suspect]
     Indication: ATRIAL FIBRILLATION
     Dosage: 1 PO QD
     Route: 048
  2. FERROUS SULFATE TAB [Suspect]
     Indication: ANAEMIA
     Dosage: 1 PO TID
     Route: 048
  3. FELODIPINE [Concomitant]
  4. RABEPRAZOLE SODIUM [Concomitant]
  5. EPOTIN [Concomitant]
  6. CALCIUM ACETATE [Concomitant]
  7. TERAZOSIN HCL [Concomitant]

REACTIONS (5)
  - ANAEMIA [None]
  - ASTHENIA [None]
  - DECREASED APPETITE [None]
  - DIARRHOEA [None]
  - FAECES DISCOLOURED [None]
